FAERS Safety Report 10207707 (Version 1)
Quarter: 2014Q2

REPORT INFORMATION
  Report Type: Spontaneous
  Country: US (occurrence: US)
  Receive Date: 20140530
  Receipt Date: 20140530
  Transmission Date: 20141212
  Serious: No
  Sender: FDA-Public Use
  Company Number: US-GLAXOSMITHKLINE-A1055788A

PATIENT
  Age: 71 Year
  Sex: Female

DRUGS (15)
  1. VENTOLIN [Suspect]
     Indication: CHEST DISCOMFORT
     Dosage: 2PUFF AS REQUIRED
     Route: 055
     Dates: start: 20130105
  2. TUSSIN DM [Concomitant]
  3. CHLOR TAB [Concomitant]
  4. DILTIAZEM CD [Concomitant]
  5. DIOVAN [Concomitant]
  6. FUROSEMIDE [Concomitant]
  7. SYNTHROID [Concomitant]
  8. OMEPRAZOLE [Concomitant]
  9. PIOGLITAZONE [Concomitant]
  10. PRANDIN [Concomitant]
  11. ANASTROZOLE [Concomitant]
  12. ASPIRIN [Concomitant]
  13. NIACIN [Concomitant]
  14. FISH OIL [Concomitant]
  15. VITAMIN [Concomitant]

REACTIONS (5)
  - Chest discomfort [Recovered/Resolved]
  - Malaise [Recovered/Resolved]
  - Drug ineffective [Recovered/Resolved]
  - Drug administration error [Recovered/Resolved]
  - Product quality issue [Unknown]
